FAERS Safety Report 18206693 (Version 1)
Quarter: 2020Q3

REPORT INFORMATION
  Report Type: Spontaneous
  Country: US (occurrence: US)
  Receive Date: 20200827
  Receipt Date: 20200827
  Transmission Date: 20201103
  Serious: No
  Sender: FDA-Public Use
  Company Number: None

PATIENT
  Age: 68 Year
  Sex: Male
  Weight: 73.03 kg

DRUGS (1)
  1. PRALUENT [Suspect]
     Active Substance: ALIROCUMAB
     Dosage: OTHER
     Route: 058

REACTIONS (3)
  - Rash [None]
  - Skin discolouration [None]
  - Erythema [None]

NARRATIVE: CASE EVENT DATE: 20200827
